FAERS Safety Report 9718479 (Version 1)
Quarter: 2013Q4

REPORT INFORMATION
  Report Type: Spontaneous
  Country: FI (occurrence: FI)
  Receive Date: 20131127
  Receipt Date: 20131127
  Transmission Date: 20140711
  Serious: Yes (Disabling)
  Sender: FDA-Public Use
  Company Number: FI-009507513-1311FIN011120

PATIENT
  Age: 91 Year
  Sex: Female

DRUGS (1)
  1. TAFLOTAN [Suspect]
     Indication: INTRAOCULAR PRESSURE INCREASED
     Dosage: 1 GTT, QD, 15UG/ML
     Route: 047
     Dates: start: 201211, end: 201310

REACTIONS (1)
  - Heart rate decreased [Not Recovered/Not Resolved]
